FAERS Safety Report 10334648 (Version 1)
Quarter: 2014Q3

REPORT INFORMATION
  Report Type: Spontaneous
  Country: US (occurrence: None)
  Receive Date: 20140721
  Receipt Date: 20140721
  Transmission Date: 20150326
  Serious: No
  Sender: FDA-Public Use
  Company Number: None

PATIENT
  Age: 50 Year
  Sex: Female
  Weight: 90.72 kg

DRUGS (3)
  1. DULOXETINE [Suspect]
     Active Substance: DULOXETINE
     Indication: ANXIETY
     Dosage: 1 CAP ONCE DAILY TAKEN BY MOUTH
     Route: 048
     Dates: start: 20140707, end: 20140717
  2. DULOXETINE [Suspect]
     Active Substance: DULOXETINE
     Indication: BACK PAIN
     Dosage: 1 CAP ONCE DAILY TAKEN BY MOUTH
     Route: 048
     Dates: start: 20140707, end: 20140717
  3. DULOXETINE [Suspect]
     Active Substance: DULOXETINE
     Indication: DEPRESSION
     Dosage: 1 CAP ONCE DAILY TAKEN BY MOUTH
     Route: 048
     Dates: start: 20140707, end: 20140717

REACTIONS (12)
  - Nausea [None]
  - Product substitution issue [None]
  - Dizziness [None]
  - Affective disorder [None]
  - Panic attack [None]
  - Drug withdrawal syndrome [None]
  - Disorientation [None]
  - Nightmare [None]
  - Insomnia [None]
  - Irritability [None]
  - Diarrhoea [None]
  - Migraine [None]

NARRATIVE: CASE EVENT DATE: 20140717
